FAERS Safety Report 8399634-1 (Version None)
Quarter: 2012Q2

REPORT INFORMATION
  Report Type: 
  Country: None (occurrence: None)
  Receive Date: 20120531
  Receipt Date: 20120512
  Transmission Date: 20120825
  Serious: Yes (Other)
  Sender: FDA-Public Use
  Company Number: CN-PFIZER INC-2012116322

PATIENT
  Age: 22 Year
  Sex: Female

DRUGS (1)
  1. HEMABATE [Suspect]
     Indication: UTERINE HYPOTONUS
     Dosage: 250 UG, UNK
     Route: 050
     Dates: start: 20120512, end: 20120512

REACTIONS (5)
  - RASH [None]
  - HEADACHE [None]
  - DRUG HYPERSENSITIVITY [None]
  - BLOOD PRESSURE INCREASED [None]
  - DYSPNOEA [None]
